FAERS Safety Report 8905211 (Version 2)
Quarter: 2013Q1

REPORT INFORMATION
  Report Type: Spontaneous
  Country: US (occurrence: US)
  Receive Date: 20121112
  Receipt Date: 20130129
  Transmission Date: 20140127
  Serious: Yes (Hospitalization, Other)
  Sender: FDA-Public Use
  Company Number: PHEH2012US022079

PATIENT
  Age: 89 None
  Sex: Male
  Weight: 62 kg

DRUGS (2)
  1. GLEEVEC [Suspect]
     Indication: CHRONIC MYELOID LEUKAEMIA
     Dosage: 400 MG, DAILY
     Route: 048
     Dates: start: 20121015
  2. GLEEVEC [Suspect]
     Dosage: UNK UKN, UNK
     Route: 048
     Dates: end: 20121101

REACTIONS (2)
  - Hallucination [Recovered/Resolved]
  - Staphylococcal bacteraemia [Unknown]
